FAERS Safety Report 18438682 (Version 2)
Quarter: 2020Q4

REPORT INFORMATION
  Report Type: Report from Study
  Country: US (occurrence: US)
  Receive Date: 20201029
  Receipt Date: 20201211
  Transmission Date: 20210114
  Serious: Yes (Other)
  Sender: FDA-Public Use
  Company Number: US-PFIZER INC-2020156381

PATIENT
  Age: 44 Year
  Sex: Female

DRUGS (2)
  1. SUTENT [Suspect]
     Active Substance: SUNITINIB MALATE
     Dosage: 37.5 MG, DAILY
     Route: 048
     Dates: start: 202009
  2. SUTENT [Suspect]
     Active Substance: SUNITINIB MALATE
     Indication: GASTROINTESTINAL STROMAL TUMOUR
     Dosage: 37.5 MG, DAILY
     Route: 048
     Dates: start: 20200402, end: 20200528

REACTIONS (11)
  - Neuropathy peripheral [Unknown]
  - Mucosal inflammation [Recovering/Resolving]
  - Headache [Recovered/Resolved]
  - Limb discomfort [Recovering/Resolving]
  - Stomatitis [Unknown]
  - Skin exfoliation [Unknown]
  - Pain in extremity [Recovering/Resolving]
  - Diarrhoea [Not Recovered/Not Resolved]
  - Gait disturbance [Recovering/Resolving]
  - Taste disorder [Unknown]
  - Neoplasm progression [Unknown]

NARRATIVE: CASE EVENT DATE: 2020
